FAERS Safety Report 12166930 (Version 1)
Quarter: 2016Q1

REPORT INFORMATION
  Report Type: Spontaneous
  Country: FR (occurrence: FR)
  Receive Date: 20160310
  Receipt Date: 20160310
  Transmission Date: 20160526
  Serious: Yes (Hospitalization, Other)
  Sender: FDA-Public Use
  Company Number: FR-ASTRAZENECA-2016SE11793

PATIENT
  Age: 46 Year
  Sex: Male
  Weight: 101 kg

DRUGS (6)
  1. XEROQUEL [Suspect]
     Active Substance: QUETIAPINE FUMARATE
     Indication: ACUTE PSYCHOSIS
     Route: 048
     Dates: end: 201601
  2. LOXAPINE. [Concomitant]
     Active Substance: LOXAPINE
     Indication: SEDATION
     Dates: start: 201401
  3. XEROQUEL [Suspect]
     Active Substance: QUETIAPINE FUMARATE
     Indication: ACUTE PSYCHOSIS
     Route: 048
     Dates: start: 201601, end: 20160129
  4. IMOVANE [Concomitant]
     Active Substance: ZOPICLONE
     Indication: INSOMNIA
     Dates: start: 201401
  5. LOXAPINE. [Concomitant]
     Active Substance: LOXAPINE
     Indication: ANXIOLYTIC THERAPY
     Dates: start: 201401
  6. LEPTICUR [Concomitant]
     Active Substance: TROPATEPINE HYDROCHLORIDE
     Indication: DYSKINESIA
     Dosage: 1 DF PER DAY AS REQUIRED
     Dates: start: 201401

REACTIONS (4)
  - Neutropenia [Recovered/Resolved]
  - Product use issue [Recovered/Resolved]
  - Acute psychosis [Recovered/Resolved]
  - Off label use [Recovered/Resolved]

NARRATIVE: CASE EVENT DATE: 2011
